FAERS Safety Report 21559447 (Version 1)
Quarter: 2022Q4

REPORT INFORMATION
  Report Type: Report from Study
  Country: DE (occurrence: DE)
  Receive Date: 20221107
  Receipt Date: 20221107
  Transmission Date: 20230112
  Serious: Yes (Other)
  Sender: FDA-Public Use
  Company Number: DE-002147023-NVSC2021DE028040

PATIENT

DRUGS (4)
  1. DICLOFENAC [Suspect]
     Active Substance: DICLOFENAC
     Indication: Paternal exposure during pregnancy
     Dosage: EXPOSURE VIA PARTNER; PATERNAL DOSE: 75 MG, QD
     Route: 050
     Dates: start: 20200710, end: 20200904
  2. COSENTYX [Suspect]
     Active Substance: SECUKINUMAB
     Indication: Paternal exposure during pregnancy
     Dosage: 150 MG (EXPOSURE VIA PARTNER; PATERNAL DOSE: 150 MG, Q4W)
     Route: 050
     Dates: start: 20190919
  3. IBUPROFEN [Concomitant]
     Active Substance: IBUPROFEN
     Indication: Paternal exposure during pregnancy
     Dosage: EXPOSURE VIA PARTNER; PATERNAL DOSE: 800 MG, QD
     Route: 050
     Dates: start: 20140304, end: 20200710
  4. ETORICOXIB [Concomitant]
     Active Substance: ETORICOXIB
     Indication: Paternal exposure during pregnancy
     Dosage: EXPOSURE VIA PARTNER; PATERNAL DOSE: 90 MG, QD
     Route: 050
     Dates: start: 20200904

REACTIONS (1)
  - Paternal exposure during pregnancy [Unknown]

NARRATIVE: CASE EVENT DATE: 20200815
